FAERS Safety Report 9460551 (Version 2)
Quarter: 2013Q3

REPORT INFORMATION
  Report Type: Spontaneous
  Country: US (occurrence: US)
  Receive Date: 20130815
  Receipt Date: 20130918
  Transmission Date: 20140515
  Serious: No
  Sender: FDA-Public Use
  Company Number: US-009507513-1308USA006817

PATIENT
  Sex: 0

DRUGS (1)
  1. COPPERTONE KIDS CONTINUOUS SPRAY SPF-50 [Suspect]
     Indication: PRODUCT USED FOR UNKNOWN INDICATION
     Dosage: UNK, UNKNOWN
     Route: 061
     Dates: start: 201308

REACTIONS (2)
  - Eye pain [Unknown]
  - Accidental exposure to product [Unknown]
